FAERS Safety Report 16051932 (Version 1)
Quarter: 2019Q1

REPORT INFORMATION
  Report Type: Spontaneous
  Country: CN (occurrence: CN)
  Receive Date: 20190308
  Receipt Date: 20190308
  Transmission Date: 20190418
  Serious: Yes (Death)
  Sender: FDA-Public Use
  Company Number: CN-AMNEAL PHARMACEUTICALS-2019AMN00285

PATIENT

DRUGS (2)
  1. LORNOXICAM [Suspect]
     Active Substance: LORNOXICAM
     Indication: PROCEDURAL PAIN
     Dosage: 0.4 MG/ML AS LOADING DOSE FOLLOWED BY A CONTINUOUS INFUSION
     Route: 042
  2. TRAMADOL HYDROCHLORIDE. [Suspect]
     Active Substance: TRAMADOL HYDROCHLORIDE
     Indication: PROCEDURAL PAIN
     Dosage: 5 MG/ML AS LOADING, FOLLOWED BY CONTINOUS INFUSION
     Route: 042

REACTIONS (1)
  - Pneumonia [Fatal]
